FAERS Safety Report 18097314 (Version 1)
Quarter: 2020Q3

REPORT INFORMATION
  Report Type: Spontaneous
  Country: US (occurrence: US)
  Receive Date: 20200730
  Receipt Date: 20200730
  Transmission Date: 20201103
  Serious: Yes (Other)
  Sender: FDA-Public Use
  Company Number: US-THE MENTHOLATUM COMPANY-2087973

PATIENT
  Sex: Female

DRUGS (1)
  1. SOFTLIPS VANILLA [Suspect]
     Active Substance: DIMETHICONE\OCTINOXATE\OCTISALATE\OXYBENZONE
     Indication: CHAPPED LIPS
     Route: 061
     Dates: end: 20200615

REACTIONS (2)
  - Blister [Not Recovered/Not Resolved]
  - Oral discomfort [Not Recovered/Not Resolved]
